FAERS Safety Report 24773243 (Version 2)
Quarter: 2025Q1

REPORT INFORMATION
  Report Type: Spontaneous
  Country: CZ (occurrence: CZ)
  Receive Date: 20241225
  Receipt Date: 20250219
  Transmission Date: 20250409
  Serious: Yes (Other)
  Sender: ROCHE
  Company Number: CZ-ROCHE-10000164014

PATIENT
  Sex: Female

DRUGS (2)
  1. OCREVUS [Suspect]
     Active Substance: OCRELIZUMAB
     Indication: Relapsing-remitting multiple sclerosis
     Route: 065
     Dates: start: 20220805
  2. COPAXONE [Concomitant]
     Active Substance: GLATIRAMER ACETATE
     Dates: start: 202104

REACTIONS (3)
  - Aspergillus infection [Recovered/Resolved]
  - Disease progression [Unknown]
  - Lung infiltration [Unknown]
